FAERS Safety Report 6930097-6 (Version None)
Quarter: 2010Q3

REPORT INFORMATION
  Report Type: 
  Country: None (occurrence: None)
  Receive Date: 20100818
  Receipt Date: 20100809
  Transmission Date: 20110219
  Serious: Yes (Hospitalization, Other)
  Sender: FDA-Public Use
  Company Number: BR-ASTRAZENECA-2010SE37356

PATIENT
  Age: 73 Year
  Sex: Male
  Weight: 67 kg

DRUGS (4)
  1. SEROQUEL [Suspect]
     Route: 048
     Dates: start: 20070101, end: 20090101
  2. SEROQUEL [Suspect]
     Route: 048
     Dates: start: 20100301, end: 20100601
  3. SEROQUEL [Suspect]
     Route: 048
     Dates: start: 20100601, end: 20100701
  4. SEROQUEL [Suspect]
     Route: 048
     Dates: start: 20100701

REACTIONS (5)
  - ARTERIAL OCCLUSIVE DISEASE [None]
  - DIZZINESS [None]
  - FALL [None]
  - FATIGUE [None]
  - LACERATION [None]
